FAERS Safety Report 8422243-2 (Version None)
Quarter: 2012Q2

REPORT INFORMATION
  Report Type: 
  Country: None (occurrence: None)
  Receive Date: 20120323
  Receipt Date: 20110318
  Transmission Date: 20120825
  Serious: Yes (Hospitalization)
  Sender: FDA-Public Use
  Company Number: 163-21880-11032207

PATIENT
  Age: 83 Year
  Sex: Female
  Weight: 52.1637 kg

DRUGS (14)
  1. MULTIVITAMIN [Concomitant]
  2. LOVASTATIN [Concomitant]
  3. VITAMIN B COMPLEX (B-KOMPLEX) [Concomitant]
  4. GLIPIZIDE [Concomitant]
  5. METFFORMIN HYDROCHLORIDE [Concomitant]
  6. GLUCOSAMINE W/CHONDROITIN (CHONDROITIN SODIUM SULFATE W/GLUCOSAMINE HC [Concomitant]
  7. DEXAMETHASONE [Concomitant]
  8. ASPIRIN [Concomitant]
  9. CALCIUM W/VITAMIN D (CALCIUM D3) [Concomitant]
  10. REVLIMID [Suspect]
     Indication: MULTIPLE MYELOMA
     Dosage: 25 MG, DAILY X 28 DAYS, PO
     Route: 048
     Dates: start: 20100819, end: 20110101
  11. ACIDOPHILIS (LACTOBACILLUS ACIDOPHILUS) [Concomitant]
  12. LISINOPRIL [Concomitant]
  13. VITAMIN E [Concomitant]
  14. ASCORBIC ACID [Concomitant]

REACTIONS (4)
  - URINARY TRACT INFECTION [None]
  - HAEMOGLOBIN DECREASED [None]
  - HYPERTENSION [None]
  - CELLULITIS [None]
